FAERS Safety Report 12192428 (Version 2)
Quarter: 2016Q1

REPORT INFORMATION
  Report Type: Spontaneous
  Country: JP (occurrence: JP)
  Receive Date: 20160318
  Receipt Date: 20160329
  Transmission Date: 20160526
  Serious: Yes (Other)
  Sender: FDA-Public Use
  Company Number: JP-ELI_LILLY_AND_COMPANY-JP201603005137

PATIENT
  Age: 75 Year
  Sex: Female

DRUGS (12)
  1. BETAMETHASONE. [Concomitant]
     Active Substance: BETAMETHASONE
     Indication: MALAISE
     Dosage: 2 MG, EACH MORNING
     Route: 048
  2. FUROSEMIDE. [Concomitant]
     Active Substance: FUROSEMIDE
     Indication: ASCITES
  3. ANPEC /00036303/ [Suspect]
     Active Substance: MORPHINE HYDROCHLORIDE
     Indication: PAIN
     Dosage: 5 MG, BID
     Route: 054
  4. OXIFAST [Suspect]
     Active Substance: OXYCODONE
     Indication: PAIN
     Dosage: UNK
  5. FUROSEMIDE. [Concomitant]
     Active Substance: FUROSEMIDE
     Dosage: UNK
     Route: 042
  6. DEXAMETHASONE. [Concomitant]
     Active Substance: DEXAMETHASONE
     Dosage: UNK
     Route: 042
  7. BETAMETHASONE. [Concomitant]
     Active Substance: BETAMETHASONE
     Indication: DECREASED APPETITE
  8. DICLOFENAC SODIUM. [Concomitant]
     Active Substance: DICLOFENAC SODIUM
     Indication: STOMATITIS
     Dosage: 20 ML, TID
     Route: 050
  9. LOXOPROFEN [Concomitant]
     Active Substance: LOXOPROFEN
     Indication: PAIN
     Dosage: 60 MG, TID
     Route: 048
  10. CYMBALTA [Suspect]
     Active Substance: DULOXETINE HYDROCHLORIDE
     Indication: PRODUCT USED FOR UNKNOWN INDICATION
     Dosage: 20 MG, QD
     Route: 048
  11. OXYCONTIN [Concomitant]
     Active Substance: OXYCODONE HYDROCHLORIDE
     Indication: PAIN
     Dosage: 5 MG, BID
     Route: 048
  12. FUROSEMIDE. [Concomitant]
     Active Substance: FUROSEMIDE
     Indication: PLEURAL EFFUSION
     Dosage: 40 MG, EACH MORNING
     Route: 048

REACTIONS (8)
  - Seizure [Recovering/Resolving]
  - Pneumonia [Unknown]
  - Altered state of consciousness [Not Recovered/Not Resolved]
  - Restlessness [Recovering/Resolving]
  - Drug withdrawal syndrome [Recovering/Resolving]
  - Thirst [Unknown]
  - Somnolence [Recovering/Resolving]
  - Myoclonus [Unknown]
